FAERS Safety Report 5307092-6 (Version None)
Quarter: 2007Q1

REPORT INFORMATION
  Report Type: 
  Country: None (occurrence: None)
  Receive Date: 20070201
  Receipt Date: 20061206
  Transmission Date: 20070707
  Serious: No
  Sender: FDA-Public Use
  Company Number: 2006PV026519

PATIENT
  Age: 62 Year
  Sex: Female
  Weight: 92.9874 kg

DRUGS (2)
  1. BYETTA [Suspect]
     Indication: DIABETES MELLITUS NON-INSULIN-DEPENDENT
     Dosage: SEE IMAGE
     Route: 058
  2. LANTUS [Concomitant]

REACTIONS (7)
  - BLOOD GLUCOSE DECREASED [None]
  - BREAST ENGORGEMENT [None]
  - BREAST INFECTION [None]
  - CELLULITIS [None]
  - MENTAL IMPAIRMENT [None]
  - NAUSEA [None]
  - WEIGHT DECREASED [None]
